FAERS Safety Report 25940707 (Version 1)
Quarter: 2025Q4

REPORT INFORMATION
  Report Type: Spontaneous
  Country: US (occurrence: None)
  Receive Date: 20251019
  Receipt Date: 20251019
  Transmission Date: 20260117
  Serious: Yes (Hospitalization)
  Sender: FDA-CTU
  Company Number: None

PATIENT
  Sex: Female

DRUGS (2)
  1. BIKTARVY [Suspect]
     Active Substance: BICTEGRAVIR SODIUM\EMTRICITABINE\TENOFOVIR ALAFENAMIDE FUMARATE
     Indication: HIV infection
     Dosage: 50 MG DAILY ORAL
     Route: 048
     Dates: start: 20250725
  2. CABENUVA [Concomitant]
     Active Substance: CABOTEGRAVIR\RILPIVIRINE

REACTIONS (1)
  - Nasopharyngitis [None]
